FAERS Safety Report 11607394 (Version 1)
Quarter: 2015Q4

REPORT INFORMATION
  Report Type: Other
  Country: AU (occurrence: AU)
  Receive Date: 20151007
  Receipt Date: 20151007
  Transmission Date: 20160304
  Serious: Yes (Other)
  Sender: FDA-Public Use
  Company Number: AU-SHIRE-AU201512306

PATIENT

DRUGS (1)
  1. VYVANSE [Suspect]
     Active Substance: LISDEXAMFETAMINE DIMESYLATE
     Indication: ATTENTION DEFICIT/HYPERACTIVITY DISORDER
     Dosage: UNK, UNKNOWN
     Route: 048

REACTIONS (18)
  - Aggression [Unknown]
  - Irritability [Unknown]
  - Drug effect decreased [Unknown]
  - Obsessive thoughts [Unknown]
  - Headache [Unknown]
  - Anxiety [Unknown]
  - Epistaxis [Unknown]
  - Nausea [Unknown]
  - Abdominal pain [Unknown]
  - Flat affect [Unknown]
  - Agitation [Unknown]
  - Dizziness [Unknown]
  - Insomnia [Unknown]
  - Social avoidant behaviour [Unknown]
  - Crying [Unknown]
  - Vomiting [Unknown]
  - Tic [Unknown]
  - Decreased appetite [Unknown]
